FAERS Safety Report 4839508-3 (Version None)
Quarter: 2005Q4

REPORT INFORMATION
  Report Type: 
  Country: None (occurrence: None)
  Receive Date: 20051129
  Receipt Date: 20051118
  Transmission Date: 20060501
  Serious: Yes (Hospitalization, Disabling)
  Sender: FDA-Public Use
  Company Number: US-MERCK-0511USA03472

PATIENT
  Sex: Female
  Weight: 127 kg

DRUGS (1)
  1. VIOXX [Suspect]
     Indication: RHEUMATOID ARTHRITIS
     Route: 048

REACTIONS (11)
  - ABASIA [None]
  - CARDIAC DISORDER [None]
  - CHEST PAIN [None]
  - DYSPNOEA [None]
  - GAIT DISTURBANCE [None]
  - JOINT INJURY [None]
  - MALAISE [None]
  - NECK MASS [None]
  - PHARYNGEAL MASS [None]
  - RESPIRATORY DISORDER [None]
  - UPPER RESPIRATORY TRACT INFECTION [None]
